FAERS Safety Report 10737921 (Version 1)
Quarter: 2015Q1

REPORT INFORMATION
  Report Type: Spontaneous
  Country: US (occurrence: US)
  Receive Date: 20150126
  Receipt Date: 20150126
  Transmission Date: 20150721
  Serious: Yes (Other)
  Sender: FDA-Public Use
  Company Number: US-SA-2014SA123227

PATIENT
  Age: 67 Year
  Sex: Male

DRUGS (9)
  1. RUXOLITINIB PHOSPHATE [Suspect]
     Active Substance: RUXOLITINIB PHOSPHATE
     Indication: MYELOFIBROSIS
     Route: 048
     Dates: start: 20131023, end: 201312
  2. ASPIRIN. [Concomitant]
     Active Substance: ASPIRIN
  3. ATORVASTATIN [Concomitant]
     Active Substance: ATORVASTATIN
  4. ATENOLOL. [Concomitant]
     Active Substance: ATENOLOL
  5. LASIX [Suspect]
     Active Substance: FUROSEMIDE
     Indication: SWELLING
     Dosage: ONCE OR TWICE DAILY
     Route: 065
  6. METFORMIN [Concomitant]
     Active Substance: METFORMIN HYDROCHLORIDE
  7. ALLOPURINOL. [Concomitant]
     Active Substance: ALLOPURINOL
  8. RUXOLITINIB PHOSPHATE [Suspect]
     Active Substance: RUXOLITINIB PHOSPHATE
     Indication: MYELOFIBROSIS
     Route: 048
     Dates: start: 20131216
  9. JANUVIA [Concomitant]
     Active Substance: SITAGLIPTIN PHOSPHATE

REACTIONS (3)
  - Blood uric acid increased [Unknown]
  - Acute prerenal failure [Unknown]
  - Fatigue [Unknown]

NARRATIVE: CASE EVENT DATE: 2013
